FAERS Safety Report 7573010-3 (Version None)
Quarter: 2011Q2

REPORT INFORMATION
  Report Type: 
  Country: None (occurrence: None)
  Receive Date: 20110627
  Receipt Date: 20110620
  Transmission Date: 20111010
  Serious: Yes (Hospitalization)
  Sender: FDA-Public Use
  Company Number: FR-B.I. PHARMACEUTICALS,INC./RIDGEFIELD-2011-FF-00522FF

PATIENT
  Sex: Male

DRUGS (5)
  1. VALSARTAN [Concomitant]
     Indication: ARTERITIS CORONARY
     Dosage: 80 MG
     Route: 048
  2. PULMICORT [Concomitant]
     Indication: CHRONIC OBSTRUCTIVE PULMONARY DISEASE
     Dosage: 400 MCG
     Route: 055
  3. SPIRIVA [Suspect]
     Indication: CHRONIC OBSTRUCTIVE PULMONARY DISEASE
     Dosage: 18 MCG
     Route: 055
  4. ATORVASTATIN CALCIUM [Concomitant]
     Indication: ARTERITIS CORONARY
     Dosage: 40 MG
     Route: 048
  5. ASPIRIN [Concomitant]
     Indication: ARTERITIS CORONARY
     Dosage: 75 MG
     Route: 048

REACTIONS (2)
  - ATRIAL FIBRILLATION [None]
  - ATRIAL FLUTTER [None]
